FAERS Safety Report 11837634 (Version 2)
Quarter: 2016Q2

REPORT INFORMATION
  Report Type: Spontaneous
  Country: US (occurrence: US)
  Receive Date: 20151215
  Receipt Date: 20160627
  Transmission Date: 20160815
  Serious: Yes (Hospitalization)
  Sender: FDA-Public Use
  Company Number: US-FERRINGPH-2015FE04655

PATIENT

DRUGS (23)
  1. B COMPLEX                          /00322001/ [Concomitant]
     Dosage: 100 MG, 2 TIMES DAILY
     Route: 048
  2. CINNAMON                           /01647501/ [Concomitant]
     Active Substance: CINNAMON
     Dosage: 500 MG, DAILY
     Route: 048
  3. VITRON C [Concomitant]
     Active Substance: DIETARY SUPPLEMENT
     Dosage: 65 MG, DAILY IN THE MORNING
     Route: 048
  4. PREPOPIK [Suspect]
     Active Substance: ANHYDROUS CITRIC ACID\MAGNESIUM OXIDE\SODIUM PICOSULFATE
     Indication: BOWEL PREPARATION
     Dosage: 2 SACHETS, DAY BEFORE METHOD
     Route: 048
  5. COENZYME Q10 [Concomitant]
     Active Substance: UBIDECARENONE
     Dosage: 1000 MG, DAILY
     Route: 048
  6. LIPITOR [Concomitant]
     Active Substance: ATORVASTATIN CALCIUM
     Dosage: 10 MG, DAILY AT BEDTIME
     Route: 065
  7. POTASSIUM CITRATE. [Concomitant]
     Active Substance: POTASSIUM CITRATE
     Dosage: 10 MEQ, 4 TIMES DAILY
     Route: 048
  8. DONEPEZIL HCL [Concomitant]
     Active Substance: DONEPEZIL HYDROCHLORIDE
     Dosage: 10 MG, UNK
     Route: 048
  9. OSTEO BI-FLEX                      /01431201/ [Concomitant]
     Dosage: 1200 MG, DAILY
     Route: 065
  10. PRITEC [Concomitant]
     Dosage: 100 MG, DAILY
     Route: 048
  11. VITAMIN D                          /00107901/ [Concomitant]
     Active Substance: ERGOCALCIFEROL
     Dosage: 1000 MG, 1 TIME DAILY IN THE MORNING
     Route: 048
  12. VITAMIN C [Concomitant]
     Active Substance: ASCORBIC ACID
     Dosage: 500 MG, 2 TIMES DAILY
     Route: 048
  13. ASPIRIN                            /00002701/ [Concomitant]
     Active Substance: ASPIRIN
     Dosage: UNK, DAILY
     Route: 048
  14. GINGO BILOBA [Concomitant]
     Dosage: 120 MG, DAILY
     Route: 048
  15. SEROQUEL [Concomitant]
     Active Substance: QUETIAPINE FUMARATE
     Dosage: 300 MG, 1 TIME DAILY AT BEDTIME
     Route: 048
  16. FLAXSEED [Concomitant]
     Active Substance: FLAX SEED
     Dosage: 100 MG, DAILY AT DINNER
     Route: 048
  17. MVI                                /01825701/ [Concomitant]
     Active Substance: VITAMINS
     Dosage: 1 TAB, DAILY
     Route: 048
  18. NASONEX [Concomitant]
     Active Substance: MOMETASONE FUROATE
     Dosage: 2 SPRAYS, 2 TIMES DAILY
     Route: 065
  19. NEXIUM [Concomitant]
     Active Substance: ESOMEPRAZOLE MAGNESIUM
     Dosage: 40 MG, DAILY
     Route: 065
  20. OMEGA 3 + 6 COMPLEX [Concomitant]
     Dosage: 1200 MG, 2 TIMES DAILY
     Route: 048
  21. BENZTROPINE OMEGA [Concomitant]
     Dosage: 1 MG, 1 TIME DAILY AT NIGHT
     Route: 065
  22. CLONAZEPAM. [Concomitant]
     Active Substance: CLONAZEPAM
     Dosage: 1 MG, UNK
     Route: 048
  23. TRICOR                             /00090101/ [Concomitant]
     Active Substance: ADENOSINE
     Dosage: 145 MG, 1 TIME DAILY AT NIGHT
     Route: 048

REACTIONS (3)
  - Cognitive disorder [Recovered/Resolved]
  - Dehydration [Recovered/Resolved]
  - Diarrhoea [Recovered/Resolved]

NARRATIVE: CASE EVENT DATE: 20150807
